FAERS Safety Report 10169704 (Version 2)
Quarter: 2014Q2

REPORT INFORMATION
  Report Type: Spontaneous
  Country: US (occurrence: US)
  Receive Date: 20140513
  Receipt Date: 20140620
  Transmission Date: 20141212
  Serious: No
  Sender: FDA-Public Use
  Company Number: US-PFIZER INC-2014129951

PATIENT
  Age: 49 Year
  Sex: Male

DRUGS (3)
  1. SUTENT [Suspect]
     Indication: RENAL CANCER
     Dosage: 50 MG FOR 28 DAYS WITH 14 DAYS OFF
     Route: 048
     Dates: start: 20140101, end: 20140508
  2. SUTENT [Suspect]
     Dosage: REDUCED DOSE
     Dates: start: 20140508
  3. METFORMIN [Concomitant]
     Dosage: UNK

REACTIONS (3)
  - Burning sensation [Unknown]
  - Ageusia [Unknown]
  - Blister [Unknown]
